FAERS Safety Report 5001995-8 (Version None)
Quarter: 2006Q2

REPORT INFORMATION
  Report Type: 
  Country: None (occurrence: None)
  Receive Date: 20060515
  Receipt Date: 20060302
  Transmission Date: 20061013
  Serious: Yes (Hospitalization, Other)
  Sender: FDA-Public Use
  Company Number: US-MERCK-0603USA00549

PATIENT
  Age: 78 Year
  Sex: Male
  Weight: 80 kg

DRUGS (12)
  1. VIOXX [Suspect]
     Indication: OSTEOARTHRITIS
     Route: 048
     Dates: start: 20000101, end: 20001201
  2. PROCARDIA XL [Concomitant]
     Route: 065
     Dates: start: 20000512
  3. ECOTRIN [Concomitant]
     Route: 065
     Dates: start: 20000512
  4. PREDNISONE [Concomitant]
     Route: 065
     Dates: start: 20000512
  5. XANAX [Concomitant]
     Route: 065
     Dates: start: 20000512
  6. FLOMAX (MORNIFLUMATE) [Concomitant]
     Route: 065
     Dates: start: 20000512
  7. CELEBREX [Concomitant]
     Route: 065
  8. PROSCAR [Concomitant]
     Route: 065
     Dates: start: 20020425
  9. ZOCOR [Concomitant]
     Route: 065
     Dates: start: 20020328
  10. PLAVIX [Concomitant]
     Route: 065
     Dates: start: 20020328
  11. NEXIUM [Concomitant]
     Route: 065
     Dates: start: 20040329
  12. [THERAPY UNSPECIFIED] [Concomitant]
     Route: 065

REACTIONS (14)
  - ANXIETY [None]
  - CARDIOVASCULAR DISORDER [None]
  - CEREBROVASCULAR ACCIDENT [None]
  - CHEST PAIN [None]
  - CORONARY ANGIOPLASTY [None]
  - COUGH [None]
  - ELECTROCARDIOGRAM ST-T CHANGE [None]
  - FEELING ABNORMAL [None]
  - LOWER GASTROINTESTINAL HAEMORRHAGE [None]
  - MYOCARDIAL INFARCTION [None]
  - NAUSEA [None]
  - PAIN [None]
  - POLYTRAUMATISM [None]
  - PULMONARY EMBOLISM [None]
